FAERS Safety Report 19189066 (Version 1)
Quarter: 2021Q2

REPORT INFORMATION
  Report Type: Spontaneous
  Country: CH (occurrence: CH)
  Receive Date: 20210428
  Receipt Date: 20210428
  Transmission Date: 20210717
  Serious: Yes (Other)
  Sender: FDA-Public Use
  Company Number: NVSC2021CH093409

PATIENT
  Age: 71 Year
  Sex: Female

DRUGS (1)
  1. ANASTROZOLE. [Suspect]
     Active Substance: ANASTROZOLE
     Indication: BREAST CANCER METASTATIC
     Dosage: UNK
     Route: 065
     Dates: start: 20200915

REACTIONS (3)
  - Malignant neoplasm progression [Unknown]
  - Breast cancer metastatic [Unknown]
  - Bicytopenia [Unknown]

NARRATIVE: CASE EVENT DATE: 20210322
